FAERS Safety Report 10020836 (Version 1)
Quarter: 2013Q4

REPORT INFORMATION
  Report Type: Spontaneous
  Country: US (occurrence: None)
  Receive Date: 20131204
  Receipt Date: 20131204
  Transmission Date: 20140711
  Serious: Yes (Other)
  Sender: FDA-Public Use
  Company Number: ADR-2013-02125

PATIENT
  Age: 60 Year
  Sex: Female

DRUGS (2)
  1. BACLOFEN [Suspect]
     Indication: POST LAMINECTOMY SYNDROME
     Dates: start: 2003
  2. MORPHINE [Suspect]
     Indication: POST LAMINECTOMY SYNDROME
     Route: 037

REACTIONS (3)
  - Pain in extremity [None]
  - Osteomyelitis [None]
  - Feeling hot [None]
